FAERS Safety Report 6434368-1 (Version None)
Quarter: 2009Q4

REPORT INFORMATION
  Report Type: 
  Country: None (occurrence: None)
  Receive Date: 20091110
  Receipt Date: 20090303
  Transmission Date: 20100525
  Serious: No
  Sender: FDA-Public Use
  Company Number: US-ASTRAZENECA-2009SE04865

PATIENT
  Sex: Female

DRUGS (2)
  1. PRILOSEC OTC [Suspect]
     Dosage: UNKNOWN
     Route: 048
  2. PROTONIX [Suspect]
     Dosage: UNKNOWN
     Route: 048

REACTIONS (2)
  - ADVERSE EVENT [None]
  - DRUG INEFFECTIVE [None]
